FAERS Safety Report 4732037-7 (Version None)
Quarter: 2005Q3

REPORT INFORMATION
  Report Type: 
  Country: None (occurrence: None)
  Receive Date: 20050722
  Receipt Date: 20050412
  Transmission Date: 20060218
  Serious: Yes (Other)
  Sender: FDA-Public Use
  Company Number: 05-000288

PATIENT
  Age: 56 Year
  Sex: Female

DRUGS (15)
  1. FEMHRT [Suspect]
     Indication: HYSTERECTOMY
     Dosage: 1/5 TABLET
     Dates: start: 20011025, end: 20021017
  2. PREMARIN [Suspect]
     Indication: HYSTERECTOMY
     Dates: start: 19900501, end: 20030201
  3. PROVERA [Suspect]
     Indication: HYSTERECTOMY
     Dates: start: 19900501, end: 20030201
  4. HYDROCODONE BITARTRATE + ACETAMINOPHEN [Concomitant]
  5. MEPROLONE UNIPAK [Concomitant]
  6. ZANAFLEX [Concomitant]
  7. SKELAXIN [Concomitant]
  8. FLEXERIL [Concomitant]
  9. THYROID TAB [Concomitant]
  10. IBUPROFEN [Concomitant]
  11. PHENTERMINE [Concomitant]
  12. VERELAN (VERAPAMIL HYDROCHLORIDE) [Concomitant]
  13. TEGRETOL [Concomitant]
  14. LIDODERM (LIDOCAINE) [Concomitant]
  15. NEURONTIN [Concomitant]

REACTIONS (1)
  - BREAST CANCER [None]
